FAERS Safety Report 12544850 (Version 2)
Quarter: 2016Q3

REPORT INFORMATION
  Report Type: Spontaneous
  Country: TR (occurrence: TR)
  Receive Date: 20160711
  Receipt Date: 20160728
  Transmission Date: 20161109
  Serious: Yes (Other)
  Sender: FDA-Public Use
  Company Number: TR-PFIZER INC-2016325686

PATIENT
  Age: 51 Year
  Sex: Male
  Weight: 69 kg

DRUGS (6)
  1. BENADAY [Concomitant]
     Dosage: UNK
  2. NEURONTIN [Suspect]
     Active Substance: GABAPENTIN
     Indication: SPINAL PAIN
     Dosage: 300 MG, 3X/DAY
  3. NEURONTIN [Suspect]
     Active Substance: GABAPENTIN
     Indication: HERNIA
  4. NEURONTIN [Suspect]
     Active Substance: GABAPENTIN
     Indication: JOINT INJURY
  5. NEURONTIN [Suspect]
     Active Substance: GABAPENTIN
     Indication: NECK INJURY
  6. NEURONTIN [Suspect]
     Active Substance: GABAPENTIN
     Indication: JOINT DISLOCATION

REACTIONS (7)
  - Urinary tract infection [Recovered/Resolved]
  - Abdominal pain [Recovered/Resolved]
  - Haematuria [Recovered/Resolved]
  - Product use issue [Unknown]
  - Calculus urinary [Unknown]
  - Aphthous ulcer [Recovered/Resolved]
  - Renal pain [Unknown]

NARRATIVE: CASE EVENT DATE: 201606
